FAERS Safety Report 12755482 (Version 1)
Quarter: 2016Q3

REPORT INFORMATION
  Report Type: Spontaneous
  Country: US (occurrence: US)
  Receive Date: 20160916
  Receipt Date: 20160916
  Transmission Date: 20161109
  Serious: No
  Sender: FDA-Public Use
  Company Number: US-BAYER-2016-111637

PATIENT
  Age: 89 Year
  Sex: Male
  Weight: 97 kg

DRUGS (7)
  1. RANITIDINE. [Concomitant]
     Active Substance: RANITIDINE
     Dosage: UNK
  2. VITAMIN D [Concomitant]
     Active Substance: CHOLECALCIFEROL
  3. MIRALAX [Suspect]
     Active Substance: POLYETHYLENE GLYCOL 3350
     Dosage: 1 DF, UNK
     Route: 048
  4. FLOMAX [Concomitant]
     Active Substance: TAMSULOSIN HYDROCHLORIDE
     Dosage: UNK
  5. PRESERVISION EYE VITAMIN AND MINERAL SUPPL. [Concomitant]
     Dosage: UNK
  6. STOOL SOFTENER [Concomitant]
     Active Substance: DOCUSATE CALCIUM
     Dosage: UNK
  7. MILK OF MAGNESIA CHERRY [Suspect]
     Active Substance: MAGNESIUM HYDROXIDE
     Indication: CONSTIPATION
     Dosage: 1 DF, QD
     Route: 048

REACTIONS (3)
  - Drug ineffective [None]
  - Product preparation error [None]
  - Drug ineffective [Unknown]

NARRATIVE: CASE EVENT DATE: 20160603
